FAERS Safety Report 24720487 (Version 1)
Quarter: 2024Q4

REPORT INFORMATION
  Report Type: Spontaneous
  Country: FR (occurrence: FR)
  Receive Date: 20241211
  Receipt Date: 20241211
  Transmission Date: 20250115
  Serious: Yes (Death, Other)
  Sender: DR REDDYS
  Company Number: FR-GERMAN-LIT/FRA/24/0017788

PATIENT
  Age: 82 Year
  Sex: Male

DRUGS (4)
  1. BENDAMUSTINE [Suspect]
     Active Substance: BENDAMUSTINE
     Indication: Mantle cell lymphoma
     Dosage: 70 MG/M2 ON DAYS 1 AND 2 PER CYCLE, EVERY 28 DAYS FOR UP TO SIX CYCLES
  2. RITUXIMAB [Suspect]
     Active Substance: RITUXIMAB
     Indication: Mantle cell lymphoma
     Dosage: FIRST COURSE
  3. RITUXIMAB [Suspect]
     Active Substance: RITUXIMAB
     Dosage: ALL SUBSEQUENT COURSES
  4. METHOTREXATE [Suspect]
     Active Substance: METHOTREXATE
     Indication: Mantle cell lymphoma
     Route: 037

REACTIONS (1)
  - Therapeutic product effect incomplete [Fatal]
